FAERS Safety Report 6412108-X (Version None)
Quarter: 2009Q4

REPORT INFORMATION
  Report Type: 
  Country: None (occurrence: None)
  Receive Date: 20091023
  Receipt Date: 20091021
  Transmission Date: 20100525
  Serious: Yes (Hospitalization)
  Sender: FDA-Public Use
  Company Number: US-GILEAD-2009-0024961

PATIENT
  Sex: Male
  Weight: 86.26 kg

DRUGS (12)
  1. LETAIRIS [Suspect]
     Indication: PULMONARY ARTERIAL HYPERTENSION
     Route: 048
     Dates: start: 20080407
  2. METOPROLOL [Concomitant]
  3. COZAAR [Concomitant]
  4. ASPIRIN [Concomitant]
  5. LASIX [Concomitant]
  6. CYMBALTA [Concomitant]
  7. HECTOROL [Concomitant]
  8. FERROUS SULFATE TAB [Concomitant]
  9. CIALIS [Concomitant]
  10. PRILOSEC [Concomitant]
  11. DAILY MULTIVITAMIN [Concomitant]
  12. POTASSIUM CHLORIDE [Concomitant]

REACTIONS (1)
  - DEEP VEIN THROMBOSIS [None]
